FAERS Safety Report 4717166-6 (Version None)
Quarter: 2005Q3

REPORT INFORMATION
  Report Type: 
  Country: None (occurrence: None)
  Receive Date: 20050719
  Receipt Date: 20050530
  Transmission Date: 20060218
  Serious: Yes (Hospitalization)
  Sender: FDA-Public Use
  Company Number: DE-GLAXOSMITHKLINE-D0046723A

PATIENT
  Age: 70 Year
  Sex: Male

DRUGS (6)
  1. QUILONUM RETARD [Suspect]
     Indication: AFFECTIVE DISORDER
     Dosage: 1TAB TWICE PER DAY
     Route: 048
     Dates: start: 19860101, end: 20050101
  2. ASPIRIN [Suspect]
     Dosage: 100MG PER DAY
     Route: 065
  3. NORVASC [Concomitant]
     Dosage: 10MG PER DAY
     Route: 065
  4. SORTIS [Concomitant]
     Dosage: 20MG PER DAY
     Route: 065
  5. DELIX [Concomitant]
     Route: 065
  6. BETABLOCKER [Concomitant]
     Route: 065

REACTIONS (3)
  - DRUG INTERACTION [None]
  - RENAL FAILURE [None]
  - THERAPEUTIC AGENT TOXICITY [None]
